FAERS Safety Report 5244591-X (Version None)
Quarter: 2007Q1

REPORT INFORMATION
  Report Type: 
  Country: None (occurrence: None)
  Receive Date: 20061201
  Receipt Date: 20060829
  Transmission Date: 20070707
  Serious: No
  Sender: FDA-Public Use
  Company Number: 2006PV020437

PATIENT
  Age: 47 Year
  Sex: Female
  Weight: 102.0593 kg

DRUGS (4)
  1. BYETTA [Suspect]
     Indication: DIABETES MELLITUS NON-INSULIN-DEPENDENT
     Dosage: 5 MCB; BID; SC
     Route: 058
     Dates: start: 20060826
  2. METFORMIN [Concomitant]
  3. ACTOS [Concomitant]
  4. GLYBURIDE [Concomitant]

REACTIONS (8)
  - ASTHENIA [None]
  - CONDITION AGGRAVATED [None]
  - ENERGY INCREASED [None]
  - FATIGUE [None]
  - HEADACHE [None]
  - NAUSEA [None]
  - SOMNOLENCE [None]
  - VOMITING [None]
